FAERS Safety Report 25862915 (Version 1)
Quarter: 2025Q3

REPORT INFORMATION
  Report Type: Spontaneous
  Country: US (occurrence: US)
  Receive Date: 20250930
  Receipt Date: 20250930
  Transmission Date: 20251021
  Serious: Yes (Other)
  Sender: ALCON
  Company Number: US-ALCON LABORATORIES-ALC2025US005156

PATIENT
  Sex: Female

DRUGS (1)
  1. RHOPRESSA [Suspect]
     Active Substance: NETARSUDIL MESYLATE
     Indication: Product used for unknown indication
     Route: 047

REACTIONS (4)
  - Intraocular pressure test abnormal [Unknown]
  - Eye pain [Unknown]
  - Visual impairment [Unknown]
  - Ocular hyperaemia [Unknown]
